FAERS Safety Report 17764926 (Version 1)
Quarter: 2020Q2

REPORT INFORMATION
  Report Type: Spontaneous
  Country: US (occurrence: US)
  Receive Date: 20200511
  Receipt Date: 20200511
  Transmission Date: 20200714
  Serious: No
  Sender: FDA-Public Use
  Company Number: US-009507513-2005USA002662

PATIENT
  Age: 62 Year
  Sex: Male

DRUGS (2)
  1. INTRON A [Suspect]
     Active Substance: INTERFERON ALFA-2B
     Indication: CUTANEOUS T-CELL LYMPHOMA
     Dosage: 3 MILLION UNITS, THREE TIMES A WEEK (TIW);STRENGTH 10 MILLIMETER UNITS PER MILLILITER (MM U/ML)
     Route: 058
     Dates: start: 2019
  2. BEXAROTENE. [Suspect]
     Active Substance: BEXAROTENE
     Dosage: UNK

REACTIONS (3)
  - Rash [Unknown]
  - Muscular weakness [Unknown]
  - Muscle spasms [Unknown]

NARRATIVE: CASE EVENT DATE: 202004
